FAERS Safety Report 5238950-9 (Version None)
Quarter: 2007Q1

REPORT INFORMATION
  Report Type: 
  Country: None (occurrence: None)
  Receive Date: 20070209
  Receipt Date: 20070202
  Transmission Date: 20070707
  Serious: Yes (Hospitalization)
  Sender: FDA-Public Use
  Company Number: SP01030

PATIENT
  Age: 66 Year
  Sex: Female

DRUGS (7)
  1. OSMOPREP [Suspect]
     Indication: COLONOSCOPY
     Dosage: 28 TABLETS IN ONE DAY, ORAL
     Route: 048
     Dates: start: 20061107, end: 20061107
  2. CADUET [Concomitant]
  3. IMDUR [Concomitant]
  4. ZESTRIL [Concomitant]
  5. LASIX [Concomitant]
  6. FOSAMAX [Concomitant]
  7. ASPIRIN [Concomitant]

REACTIONS (3)
  - HYPOTENSION [None]
  - METABOLIC DISORDER [None]
  - RENAL FAILURE [None]
